FAERS Safety Report 6191552-2 (Version None)
Quarter: 2009Q2

REPORT INFORMATION
  Report Type: 
  Country: None (occurrence: None)
  Receive Date: 20090515
  Receipt Date: 20090504
  Transmission Date: 20091009
  Serious: No
  Sender: FDA-Public Use
  Company Number: DE-ASTRAZENECA-2009PK01050

PATIENT
  Sex: Male
  Weight: 81 kg

DRUGS (2)
  1. SEROQUEL [Suspect]
     Indication: DEPRESSION
     Dosage: 100MG PLUS 25 MG DAILY
     Route: 048
     Dates: start: 20081101
  2. MIRTAZAPINE [Concomitant]

REACTIONS (1)
  - THROMBOCYTOPENIA [None]
